FAERS Safety Report 9140185 (Version 1)
Quarter: 2013Q1

REPORT INFORMATION
  Report Type: Spontaneous
  Country: US (occurrence: US)
  Receive Date: 20130305
  Receipt Date: 20130305
  Transmission Date: 20140127
  Serious: Yes (Hospitalization)
  Sender: FDA-Public Use
  Company Number: US-SANOFI-AVENTIS-2013SA021218

PATIENT
  Age: 59 Year
  Sex: Male

DRUGS (2)
  1. AMBIEN [Suspect]
  2. VORICONAZOLE [Suspect]

REACTIONS (5)
  - Encephalopathy [Recovered/Resolved]
  - Confusional state [Recovered/Resolved]
  - Mental status changes [Recovered/Resolved]
  - Incorrect dose administered [Unknown]
  - Hallucination, auditory [Unknown]
